FAERS Safety Report 10009669 (Version 1)
Quarter: 2014Q1

REPORT INFORMATION
  Report Type: Spontaneous
  Country: US (occurrence: US)
  Receive Date: 20140312
  Receipt Date: 20140312
  Transmission Date: 20141002
  Serious: No
  Sender: FDA-Public Use
  Company Number: US-INCYTE CORPORATION-2012IN002244

PATIENT
  Age: 68 Year
  Sex: Female

DRUGS (7)
  1. JAKAFI [Suspect]
     Indication: MYELOFIBROSIS
     Dosage: 15 MG, BID
     Route: 048
     Dates: start: 201209
  2. NORVASC [Concomitant]
  3. SIMVASTATIN [Concomitant]
  4. ASPIRIN [Concomitant]
     Dosage: 81 MG
  5. CALCIUM [Concomitant]
  6. FISH OIL [Concomitant]
  7. MULTIVITAMIN [Concomitant]

REACTIONS (2)
  - Abdominal pain [Unknown]
  - Dizziness [Unknown]
